FAERS Safety Report 5643545-9 (Version None)
Quarter: 2008Q1

REPORT INFORMATION
  Report Type: 
  Country: None (occurrence: None)
  Receive Date: 20080228
  Receipt Date: 20080228
  Transmission Date: 20080703
  Serious: Yes (Other)
  Sender: FDA-Public Use
  Company Number: AU-BOEHRINGER INGELHEIM GMBH, GERMANY-2007-BP-26079AU

PATIENT
  Sex: Female

DRUGS (6)
  1. MICARDIS [Suspect]
     Route: 048
     Dates: start: 20071130, end: 20071211
  2. NORVASC [Concomitant]
     Indication: HYPERTENSION
     Route: 048
  3. DIAZEPAM [Concomitant]
     Indication: MUSCLE SPASMS
     Route: 048
  4. ENDONE [Concomitant]
     Indication: PAIN
     Route: 048
  5. PANAMAX [Concomitant]
     Indication: PAIN
     Route: 048
  6. SOLPRIN [Concomitant]
     Route: 048

REACTIONS (12)
  - COUGH [None]
  - DIZZINESS [None]
  - DYSPNOEA [None]
  - ERYTHEMA [None]
  - HEADACHE [None]
  - MUSCLE SPASMS [None]
  - PAIN [None]
  - PHARYNGEAL HAEMORRHAGE [None]
  - PHARYNGOLARYNGEAL PAIN [None]
  - POLLAKIURIA [None]
  - SKIN WARM [None]
  - VISION BLURRED [None]
